FAERS Safety Report 4692966-X (Version None)
Quarter: 2005Q2

REPORT INFORMATION
  Report Type: 
  Country: None (occurrence: None)
  Receive Date: 20050617
  Receipt Date: 20050609
  Transmission Date: 20051028
  Serious: Yes (Other)
  Sender: FDA-Public Use
  Company Number: US-JNJFOC-20050603192

PATIENT
  Sex: Female
  Weight: 65.77 kg

DRUGS (14)
  1. REMICADE [Suspect]
     Route: 042
  2. REMICADE [Suspect]
     Indication: RHEUMATOID ARTHRITIS
     Route: 042
  3. CELEBREX [Concomitant]
     Dosage: DURATION: ABOUT A YEAR OR TWO.
  4. FOSAMAX [Concomitant]
     Indication: OSTEOPOROSIS
     Dosage: DURATION: MORE THAN 8 YEARS.
  5. PREDNISONE TAB [Concomitant]
     Dosage: DURATION: ^FOREVER^
  6. CENTRUM [Concomitant]
  7. CENTRUM [Concomitant]
  8. OCUVITE [Concomitant]
  9. OCUVITE [Concomitant]
  10. OCUVITE [Concomitant]
     Indication: MACULAR DEGENERATION
  11. CALTRATE +D [Concomitant]
  12. CALTRATE +D [Concomitant]
     Indication: NUTRITIONAL SUPPORT
  13. PROPOXYPHENE HCL [Concomitant]
     Indication: PAIN
  14. AMBIEN [Concomitant]
     Indication: SLEEP DISORDER THERAPY

REACTIONS (1)
  - HALO VISION [None]
